FAERS Safety Report 19443451 (Version 1)
Quarter: 2021Q2

REPORT INFORMATION
  Report Type: Spontaneous
  Country: GB (occurrence: GB)
  Receive Date: 20210621
  Receipt Date: 20210621
  Transmission Date: 20210717
  Serious: Yes (Other)
  Sender: FDA-Public Use
  Company Number: NVSC2021GB132320

PATIENT
  Age: 61 Year
  Sex: Female
  Weight: 79 kg

DRUGS (8)
  1. ADCAL [Concomitant]
     Indication: ILL-DEFINED DISORDER
     Dosage: 2 TWICE A DAY
     Route: 065
     Dates: start: 20210326, end: 20210423
  2. PREDNISOLONE. [Concomitant]
     Active Substance: PREDNISOLONE
     Indication: ILL-DEFINED DISORDER
     Dosage: REDUCE TO THE LOWEST EFFECTIVE DOSE
     Route: 065
     Dates: start: 20210525
  3. ZOLMITRIPTAN. [Concomitant]
     Active Substance: ZOLMITRIPTAN
     Indication: ILL-DEFINED DISORDER
     Dosage: AS REQUIRED
     Route: 065
     Dates: start: 20201125
  4. CHLORAMPHENICOL [Concomitant]
     Active Substance: CHLORAMPHENICOL
     Indication: ILL-DEFINED DISORDER
     Dosage: APPLY TO THE AFFECTED EYE(S) FOUR TIMES DAILY
     Route: 065
     Dates: start: 20210312, end: 20210317
  5. TEGRETOL [Concomitant]
     Active Substance: CARBAMAZEPINE
     Indication: ILL-DEFINED DISORDER
     Dosage: 1 DF, TID (ONE TO BE TAKEN THREE TIMES A DAY)
     Route: 065
     Dates: start: 20201125
  6. PHENOXYMETHYLPENICILLIN (= PENICILLIN V) [Suspect]
     Active Substance: PENICILLIN V
     Indication: ILL-DEFINED DISORDER
     Dosage: UNK
     Route: 065
     Dates: start: 20210609
  7. OMEPRAZOLE. [Concomitant]
     Active Substance: OMEPRAZOLE
     Indication: ILL-DEFINED DISORDER
     Dosage: 1 DF, QD (ONE TO BE TAKEN EACH DAY)
     Route: 065
     Dates: start: 20201125
  8. LAMOTRIGINE. [Concomitant]
     Active Substance: LAMOTRIGINE
     Indication: ILL-DEFINED DISORDER
     Dosage: 1 DF, TID (ONE TO BE THREE TIMES A DAY)
     Route: 065
     Dates: start: 20201125

REACTIONS (1)
  - Malaise [Recovered/Resolved]

NARRATIVE: CASE EVENT DATE: 20210609
